FAERS Safety Report 14320388 (Version 1)
Quarter: 2017Q4

REPORT INFORMATION
  Report Type: Spontaneous
  Country: JP (occurrence: JP)
  Receive Date: 20171222
  Receipt Date: 20171222
  Transmission Date: 20180321
  Serious: Yes (Life-Threatening, Hospitalization, Other)
  Sender: FDA-Public Use
  Company Number: JP-009507513-1712JPN011532

PATIENT
  Age: 51 Year
  Sex: Male
  Weight: 38.4 kg

DRUGS (6)
  1. AMIKACIN [Suspect]
     Active Substance: AMIKACIN
     Indication: MYCOBACTERIAL INFECTION
     Dosage: UNK
  2. MEROPENEM. [Suspect]
     Active Substance: MEROPENEM
     Indication: MYCOBACTERIAL INFECTION
     Dosage: UNK
  3. SITAFLOXACIN [Suspect]
     Active Substance: SITAFLOXACIN
     Indication: MYCOBACTERIAL INFECTION
     Dosage: UNK
  4. CLARITHROMYCIN. [Suspect]
     Active Substance: CLARITHROMYCIN
     Indication: MYCOBACTERIAL INFECTION
     Dosage: UNK
  5. FAROPENEM [Suspect]
     Active Substance: FAROPENEM
     Indication: MYCOBACTERIAL INFECTION
     Dosage: UNK
  6. IMIPENEM AND CILASTATIN [Suspect]
     Active Substance: CILASTATIN SODIUM\IMIPENEM
     Indication: MYCOBACTERIAL INFECTION
     Dosage: UNK

REACTIONS (4)
  - Respiratory failure [Unknown]
  - Lung abscess [Unknown]
  - Pathogen resistance [Unknown]
  - Drug ineffective [Unknown]
